FAERS Safety Report 6827403-X (Version None)
Quarter: 2010Q3

REPORT INFORMATION
  Report Type: 
  Country: None (occurrence: None)
  Receive Date: 20100709
  Receipt Date: 20070113
  Transmission Date: 20110219
  Serious: No
  Sender: FDA-Public Use
  Company Number: US-PFIZER INC-2007004414

PATIENT
  Sex: Male
  Weight: 102.06 kg

DRUGS (5)
  1. CHANTIX [Suspect]
     Indication: SMOKING CESSATION THERAPY
     Route: 048
     Dates: start: 20070110
  2. WELLBUTRIN [Concomitant]
     Route: 048
  3. REMERON [Concomitant]
     Route: 048
  4. KLONOPIN [Concomitant]
     Route: 048
  5. HYDROCODONE BITARTRATE [Concomitant]
     Indication: BACK DISORDER
     Route: 048

REACTIONS (3)
  - ABDOMINAL PAIN UPPER [None]
  - HEADACHE [None]
  - VOMITING [None]
